FAERS Safety Report 6679449-2 (Version None)
Quarter: 2010Q2

REPORT INFORMATION
  Report Type: 
  Country: None (occurrence: None)
  Receive Date: 20100408
  Receipt Date: 20100325
  Transmission Date: 20101027
  Serious: No
  Sender: FDA-Public Use
  Company Number: 2010-00354

PATIENT
  Age: 49 Year
  Sex: Male
  Weight: 72.5755 kg

DRUGS (6)
  1. ZICAM COLD REMEDY ORAL MIST [Suspect]
     Dosage: 3 YEARS AGO
  2. ZICAM COLD REMEDY ORAL MIST [Suspect]
     Dosage: 3 YEARS AGO -
  3. SIMVASTATIN [Concomitant]
  4. CARTIA XT [Concomitant]
  5. MULTIPLE VITAMINS [Concomitant]
  6. MULTIPLE MINERALS [Concomitant]

REACTIONS (2)
  - AGEUSIA [None]
  - EPISTAXIS [None]
